FAERS Safety Report 18568083 (Version 2)
Quarter: 2021Q1

REPORT INFORMATION
  Report Type: Other
  Country: CA (occurrence: CA)
  Receive Date: 20201202
  Receipt Date: 20210106
  Transmission Date: 20210419
  Serious: Yes (Other)
  Sender: FDA-Public Use
  Company Number: CA-CELLTRION INC.-2020CA032826

PATIENT

DRUGS (10)
  1. RITUXIMAB (UNKNOWN) [Suspect]
     Active Substance: RITUXIMAB
     Indication: SJOGREN^S SYNDROME
     Dosage: 1000.0 MG
     Route: 041
  2. RITUXIMAB (UNKNOWN) [Suspect]
     Active Substance: RITUXIMAB
     Indication: NEUROMYELITIS OPTICA SPECTRUM DISORDER
  3. METHYLPREDNISOLONE. [Concomitant]
     Active Substance: METHYLPREDNISOLONE
     Indication: PREMEDICATION
     Dosage: 100.0 MG
     Route: 042
  4. RANITIDINE. [Concomitant]
     Active Substance: RANITIDINE
  5. ACETAMINOPHEN. [Concomitant]
     Active Substance: ACETAMINOPHEN
     Indication: PREMEDICATION
     Dosage: 650.0 MG
     Route: 048
  6. TYLENOL [Concomitant]
     Active Substance: ACETAMINOPHEN
  7. BENADRYL [Concomitant]
     Active Substance: DIPHENHYDRAMINE HYDROCHLORIDE
     Route: 048
  8. LYRICA [Concomitant]
     Active Substance: PREGABALIN
  9. PREDNISONE. [Concomitant]
     Active Substance: PREDNISONE
  10. CARBAMAZEPINE. [Concomitant]
     Active Substance: CARBAMAZEPINE
     Indication: NEURALGIA
     Route: 065

REACTIONS (9)
  - Blood pressure fluctuation [Recovered/Resolved]
  - Fatigue [Recovered/Resolved]
  - Blood pressure systolic abnormal [Recovered/Resolved]
  - Drug ineffective [Recovered/Resolved]
  - Off label use [Unknown]
  - Weight increased [Recovered/Resolved]
  - Headache [Recovered/Resolved]
  - Blood pressure increased [Recovered/Resolved]
  - Neuralgia [Recovered/Resolved]
